FAERS Safety Report 9256872 (Version 2)
Quarter: 2013Q2

REPORT INFORMATION
  Report Type: Spontaneous
  Country: US (occurrence: None)
  Receive Date: 20130423
  Receipt Date: 20130515
  Transmission Date: 20140414
  Serious: Yes (Hospitalization, Other)
  Sender: FDA-Public Use
  Company Number: 2013-133

PATIENT
  Age: 55 Year
  Sex: Male
  Weight: 95.2 kg

DRUGS (14)
  1. PRIALT [Suspect]
     Indication: BACK PAIN
     Route: 037
     Dates: start: 201210, end: 20130311
  2. PRIALT [Suspect]
     Indication: POST LAMINECTOMY SYNDROME
     Route: 037
     Dates: start: 201210, end: 20130311
  3. PRIALT [Suspect]
     Indication: NEUROPATHY PERIPHERAL
     Route: 037
     Dates: start: 201210, end: 20130311
  4. PRIALT [Suspect]
     Indication: COMPLEX REGIONAL PAIN SYNDROME
     Route: 037
     Dates: start: 201210, end: 20130311
  5. PRIALT [Suspect]
     Indication: RADICULITIS BRACHIAL
     Route: 037
     Dates: start: 201210, end: 20130311
  6. PRIALT [Suspect]
     Indication: RADICULITIS
     Route: 037
     Dates: start: 201210, end: 20130311
  7. PRIALT [Suspect]
     Indication: SPINAL OSTEOARTHRITIS
     Route: 037
     Dates: start: 201210, end: 20130311
  8. PRIALT [Suspect]
     Indication: COMPLEX REGIONAL PAIN SYNDROME
     Route: 037
     Dates: start: 201210, end: 20130311
  9. PRIALT [Suspect]
     Indication: MUSCULOSKELETAL PAIN
     Route: 037
     Dates: start: 201210, end: 20130311
  10. PRIALT [Suspect]
     Indication: PAIN IN EXTREMITY
     Route: 037
     Dates: start: 201210, end: 20130311
  11. NUCYNTA [Concomitant]
  12. VALIUM [Concomitant]
  13. BACLOFEN [Concomitant]
  14. LYRICA [Concomitant]

REACTIONS (24)
  - Respiratory arrest [None]
  - Confusional state [None]
  - Cervical spinal stenosis [None]
  - Condition aggravated [None]
  - Myelomalacia [None]
  - Embolism [None]
  - Mental status changes [None]
  - Depression [None]
  - Deafness [None]
  - Heart rate irregular [None]
  - Hepatitis [None]
  - Arthritis [None]
  - Arthralgia [None]
  - Job dissatisfaction [None]
  - Ammonia increased [None]
  - Fatigue [None]
  - Pain [None]
  - Insomnia [None]
  - Burning sensation [None]
  - Nausea [None]
  - Oedema peripheral [None]
  - Pain in extremity [None]
  - Pain in extremity [None]
  - Joint swelling [None]
